FAERS Safety Report 17553316 (Version 1)
Quarter: 2020Q1

REPORT INFORMATION
  Report Type: Report from Study
  Country: None (occurrence: BR)
  Receive Date: 20200318
  Receipt Date: 20200318
  Transmission Date: 20200409
  Serious: Yes (Other)
  Sender: FDA-Public Use
  Company Number: BR-ABBVIE-20K-020-3320874-00

PATIENT
  Sex: Female
  Weight: 106 kg

DRUGS (2)
  1. HUMIRA [Suspect]
     Active Substance: ADALIMUMAB
     Indication: ANKYLOSING SPONDYLITIS
     Route: 058
     Dates: start: 20171011
  2. ABLOK PLUS [Concomitant]
     Active Substance: ATENOLOL\CHLORTHALIDONE
     Indication: HYPERTENSION

REACTIONS (12)
  - Liver disorder [Unknown]
  - Pain [Unknown]
  - Pain [Not Recovered/Not Resolved]
  - Diabetes mellitus [Not Recovered/Not Resolved]
  - Thyroid function test abnormal [Not Recovered/Not Resolved]
  - Body height decreased [Recovering/Resolving]
  - Nervous system disorder [Unknown]
  - Therapeutic product effect incomplete [Unknown]
  - Limb asymmetry [Unknown]
  - Malaise [Unknown]
  - Blood cholesterol abnormal [Not Recovered/Not Resolved]
  - Abdominal pain [Unknown]
